FAERS Safety Report 23768337 (Version 2)
Quarter: 2024Q2

REPORT INFORMATION
  Report Type: Spontaneous
  Country: BR (occurrence: BR)
  Receive Date: 20240422
  Receipt Date: 20240425
  Transmission Date: 20240716
  Serious: Yes (Other)
  Sender: FDA-Public Use
  Company Number: None

PATIENT
  Age: 38 Year
  Sex: Female
  Weight: 64 kg

DRUGS (3)
  1. KEYTRUDA [Suspect]
     Active Substance: PEMBROLIZUMAB
     Dosage: ONCE EVERY 21 DAYS
     Route: 042
     Dates: start: 20240207, end: 20240207
  2. DOXORUBICIN HYDROCHLORIDE [Suspect]
     Active Substance: DOXORUBICIN HYDROCHLORIDE
     Dosage: ONCE EVERY 14 DAYS
     Route: 042
     Dates: start: 20240207, end: 20240207
  3. GENUXAL [Suspect]
     Active Substance: CYCLOPHOSPHAMIDE
     Dosage: ONCE EVERY 14 DAYS
     Route: 042
     Dates: start: 20240207, end: 20240207

REACTIONS (1)
  - Thrombocytopenia [Recovered/Resolved]

NARRATIVE: CASE EVENT DATE: 20240219
